FAERS Safety Report 6770339-3 (Version None)
Quarter: 2010Q2

REPORT INFORMATION
  Report Type: 
  Country: None (occurrence: None)
  Receive Date: 20100615
  Receipt Date: 20100602
  Transmission Date: 20101027
  Serious: Yes (Death, Hospitalization)
  Sender: FDA-Public Use
  Company Number: JP-PFIZER INC-2009242634

PATIENT
  Age: 74 Year
  Sex: Female
  Weight: 49 kg

DRUGS (19)
  1. CAMPTOSAR [Suspect]
     Indication: OVARIAN CANCER
     Dosage: 79.1 MG/M2, (102 MG/BODY)
     Route: 041
     Dates: start: 20090427, end: 20090427
  2. LASTET [Suspect]
     Indication: OVARIAN CANCER
     Dosage: 25 MG
     Route: 048
     Dates: start: 20090427, end: 20090516
  3. GRANISETRON [Concomitant]
     Indication: PROPHYLAXIS OF NAUSEA AND VOMITING
     Dosage: 8 MG
     Route: 041
     Dates: start: 20090427, end: 20090427
  4. MYSLEE [Concomitant]
     Indication: INSOMNIA
     Dosage: 5 MG
     Route: 048
     Dates: start: 20090427, end: 20090615
  5. PAXIL [Concomitant]
     Indication: DEPRESSIVE SYMPTOM
     Dosage: 10 MG
     Route: 048
     Dates: start: 20090427, end: 20090625
  6. FAMOTIDINE [Concomitant]
     Indication: GASTRITIS
     Dosage: 20 MG, UNK
     Route: 048
     Dates: start: 20090427
  7. CONIEL [Concomitant]
     Indication: HYPERTENSION
     Dosage: 2 MG, UNK
     Route: 048
     Dates: start: 20090427
  8. PRIMPERAN [Concomitant]
     Indication: PROPHYLAXIS OF NAUSEA AND VOMITING
     Dosage: 5 MG
     Route: 048
     Dates: start: 20090428
  9. LENDORMIN [Concomitant]
     Indication: INSOMNIA
     Dosage: 0.125 MG
     Route: 048
     Dates: start: 20090430
  10. MAG-LAX [Concomitant]
     Indication: CONSTIPATION
     Dosage: 330 MG, 2X/DAY
     Route: 048
     Dates: start: 20090430
  11. MAXIPIME [Concomitant]
     Indication: INFECTION
     Dosage: 1 G, 3X/DAY
     Route: 041
     Dates: start: 20090517, end: 20090526
  12. KENALOG [Concomitant]
     Indication: STOMATITIS
     Dosage: UNK
     Route: 061
     Dates: start: 20090522
  13. KETOPROFEN [Concomitant]
     Indication: MYALGIA
     Dosage: UNK
     Route: 061
     Dates: start: 20090523
  14. LAXOBERON [Concomitant]
     Indication: CONSTIPATION
     Dosage: UNK
     Route: 048
     Dates: start: 20090524
  15. CRAVIT [Concomitant]
     Indication: URINARY TRACT INFECTION
     Dosage: 100 MG, 2X/DAY
     Route: 048
     Dates: start: 20090604
  16. HUMULIN R [Concomitant]
     Indication: DIABETES MELLITUS
     Dosage: 4-8 IU 3XDAY
     Route: 058
     Dates: start: 20090610, end: 20090625
  17. NITRODERM [Concomitant]
     Indication: ANGINA PECTORIS
     Dosage: 25 MG, UNK
     Route: 061
     Dates: start: 20090610
  18. TAKEPRON [Concomitant]
     Indication: GASTRIC ULCER
     Dosage: 15 MG, UNK
     Route: 048
     Dates: start: 20090613
  19. COTRIM [Concomitant]
     Indication: PNEUMONIA
     Dosage: 480 MG, UNK
     Route: 048
     Dates: start: 20090613

REACTIONS (7)
  - HAEMOGLOBIN DECREASED [None]
  - INTERSTITIAL LUNG DISEASE [None]
  - LEUKOPENIA [None]
  - NEUTROPENIA [None]
  - ORAL CANDIDIASIS [None]
  - PYREXIA [None]
  - THROMBOCYTOPENIA [None]
